FAERS Safety Report 17352452 (Version 1)
Quarter: 2020Q1

REPORT INFORMATION
  Report Type: Spontaneous
  Country: US (occurrence: US)
  Receive Date: 20200130
  Receipt Date: 20200130
  Transmission Date: 20200409
  Serious: Yes (Hospitalization, Other)
  Sender: FDA-Public Use
  Company Number: US-AUROBINDO-AUR-APL-2020-003960

PATIENT
  Age: 16 Year
  Sex: Female

DRUGS (1)
  1. IBUPROFEN. [Suspect]
     Active Substance: IBUPROFEN
     Indication: PRODUCT USED FOR UNKNOWN INDICATION
     Dosage: UNK
     Route: 048

REACTIONS (6)
  - Sinusitis [Not Recovered/Not Resolved]
  - Asthma [Recovered/Resolved]
  - Nasal polyps [Recovered/Resolved]
  - Eosinophilia [Recovered/Resolved]
  - Total lung capacity decreased [Recovered/Resolved]
  - Respiratory disorder [Recovered/Resolved]
